FAERS Safety Report 24449442 (Version 2)
Quarter: 2024Q4

REPORT INFORMATION
  Report Type: Report from Study
  Country: CO (occurrence: CO)
  Receive Date: 20241017
  Receipt Date: 20241125
  Transmission Date: 20250115
  Serious: Yes (Hospitalization, Other)
  Sender: AMGEN
  Company Number: CO-AMGEN-COLSL2024191806

PATIENT
  Age: 37 Year
  Sex: Male

DRUGS (2)
  1. VECTIBIX [Suspect]
     Active Substance: PANITUMUMAB
     Indication: Colorectal cancer metastatic
     Dosage: 413 MILLIGRAM, Q2WK (BIWEEKLY)
     Route: 042
     Dates: start: 20240702
  2. VECTIBIX [Suspect]
     Active Substance: PANITUMUMAB
     Dosage: 413 MILLIGRAM, Q2WK (BIWEEKLY)
     Route: 042
     Dates: start: 20241008, end: 20241008

REACTIONS (5)
  - Tachycardia [Not Recovered/Not Resolved]
  - Thrombocytosis [Not Recovered/Not Resolved]
  - Muscle spasms [Not Recovered/Not Resolved]
  - Anaemia [Not Recovered/Not Resolved]
  - Asthenia [Not Recovered/Not Resolved]

NARRATIVE: CASE EVENT DATE: 20240923
